FAERS Safety Report 24459425 (Version 1)
Quarter: 2024Q4

REPORT INFORMATION
  Report Type: Spontaneous
  Country: FR (occurrence: FR)
  Receive Date: 20241018
  Receipt Date: 20241018
  Transmission Date: 20250115
  Serious: Yes (Hospitalization)
  Sender: EXELIXIS
  Company Number: FR-IPSEN Group, Research and Development-2024-20598

PATIENT
  Age: 76 Year
  Sex: Male
  Weight: 103 kg

DRUGS (15)
  1. CABOMETYX [Suspect]
     Active Substance: CABOZANTINIB S-MALATE
     Indication: Clear cell renal cell carcinoma
     Dosage: 40 MG, QD
     Route: 048
     Dates: start: 20240810, end: 20240911
  2. HYDROCHLOROTHIAZIDE [Concomitant]
     Active Substance: HYDROCHLOROTHIAZIDE
  3. FERROUS SULFATE [Concomitant]
     Active Substance: FERROUS SULFATE
  4. VITAMIN D3 [Concomitant]
     Active Substance: CHOLECALCIFEROL
  5. METFORMIN HYDROCHLORIDE [Concomitant]
     Active Substance: METFORMIN HYDROCHLORIDE
  6. EZETIMIBE [Concomitant]
     Active Substance: EZETIMIBE
  7. VILDAGLIPTIN [Concomitant]
     Active Substance: VILDAGLIPTIN
  8. ATENOLOL [Concomitant]
     Active Substance: ATENOLOL
  9. SIMVASTATIN [Concomitant]
     Active Substance: SIMVASTATIN
  10. ACYCLOVIR [Concomitant]
     Active Substance: ACYCLOVIR
  11. MORPHINE [Concomitant]
     Active Substance: MORPHINE
  12. FUROSEMIDE [Concomitant]
     Active Substance: FUROSEMIDE
  13. IRBESARTAN [Concomitant]
     Active Substance: IRBESARTAN
  14. POLYETHYLENE GLYCOL 4000 [Concomitant]
     Active Substance: POLYETHYLENE GLYCOL 4000
  15. POTASSIUM CHLORIDE [Concomitant]
     Active Substance: POTASSIUM CHLORIDE

REACTIONS (1)
  - Cutaneous vasculitis [Recovered/Resolved]

NARRATIVE: CASE EVENT DATE: 20240911
